APPROVED DRUG PRODUCT: ALPRAZOLAM
Active Ingredient: ALPRAZOLAM
Strength: 1MG
Dosage Form/Route: TABLET;ORAL
Application: A074046 | Product #003
Applicant: PHARMOBEDIENT CONSULTING LLC
Approved: Oct 19, 1993 | RLD: No | RS: No | Type: DISCN